FAERS Safety Report 8316034 (Version 12)
Quarter: 2015Q2

REPORT INFORMATION
  Report Type: Spontaneous
  Country: US (occurrence: US)
  Receive Date: 20111220
  Receipt Date: 20150625
  Transmission Date: 20150821
  Serious: Yes (Death, Life-Threatening, Hospitalization, Disabling, Other)
  Sender: FDA-Public Use
  Company Number: US-009507513-2011SP058154

PATIENT
  Sex: Female
  Weight: 77.98 kg

DRUGS (2)
  1. NUVARING [Suspect]
     Active Substance: ETHINYL ESTRADIOL\ETONOGESTREL
     Indication: OVARIAN CYST
  2. NUVARING [Suspect]
     Active Substance: ETHINYL ESTRADIOL\ETONOGESTREL
     Indication: CONTRACEPTION
     Dosage: 50 MIC ESTROGEN 120 ETONOGESTREL/ONCE A MONTH
     Route: 067
     Dates: start: 20070801, end: 20111121

REACTIONS (16)
  - Cardiac arrest [Unknown]
  - Hormone level abnormal [Unknown]
  - Trichomoniasis [Unknown]
  - Lower respiratory tract infection [Unknown]
  - Myocardial infarction [Unknown]
  - Thrombosis [Fatal]
  - Deep vein thrombosis [Unknown]
  - Urinary tract infection [Unknown]
  - Off label use [Unknown]
  - Urinary tract infection [Unknown]
  - Pulmonary embolism [Fatal]
  - Urinary tract infection [Unknown]
  - Urinary tract infection [Unknown]
  - Blood testosterone abnormal [Unknown]
  - Urinary tract infection [Unknown]
  - Pneumonia [Unknown]

NARRATIVE: CASE EVENT DATE: 200711
